FAERS Safety Report 13559842 (Version 4)
Quarter: 2017Q3

REPORT INFORMATION
  Report Type: Spontaneous
  Country: FR (occurrence: FR)
  Receive Date: 20170518
  Receipt Date: 20170918
  Transmission Date: 20171127
  Serious: Yes (Hospitalization, Other)
  Sender: FDA-Public Use
  Company Number: FR-PFIZER INC-2017209446

PATIENT
  Age: 54 Year
  Sex: Male

DRUGS (9)
  1. ENTRESTO [Suspect]
     Active Substance: SACUBITRIL\VALSARTAN
     Indication: CARDIAC FAILURE CHRONIC
     Dosage: 1 DF [SACUBITRIL 24 MG/VALSARTAN 26 MG], 2X/DAY
     Route: 048
     Dates: start: 201602
  2. PREVISCAN /00789001/ [Suspect]
     Active Substance: FLUINDIONE
     Indication: VENTRICULAR ARRHYTHMIA
     Dosage: 3/4 DF TO 20 MG , 1X/DAY
     Route: 048
     Dates: start: 2014
  3. TAHOR [Suspect]
     Active Substance: ATORVASTATIN CALCIUM
     Indication: ARRHYTHMIA
     Dosage: 40 MG, 1X/DAY
     Route: 048
     Dates: start: 2014
  4. ONBREZ [Concomitant]
     Active Substance: INDACATEROL
     Dosage: UNK
  5. SEEBRI [Concomitant]
     Active Substance: GLYCOPYRRONIUM
     Dosage: UNK
  6. LANSOPRAZOLE MYLAN [Suspect]
     Active Substance: LANSOPRAZOLE
     Indication: GASTRIC ULCER
     Dosage: 30 MG, 1X/DAY
     Route: 048
     Dates: start: 2014
  7. PROCORALAN [Suspect]
     Active Substance: IVABRADINE
     Indication: ARRHYTHMIA
     Dosage: 7.5 MG, 2X/DAY
     Route: 048
     Dates: start: 2014
  8. ENTRESTO [Suspect]
     Active Substance: SACUBITRIL\VALSARTAN
     Indication: CARDIAC FAILURE CHRONIC
     Dosage: 1 DF [SACUBITRIL 49 MG/VALSARTAN 51 MG], 2X/DAY
     Route: 048
     Dates: start: 201602
  9. LASILIX FAIBLE [Suspect]
     Active Substance: FUROSEMIDE
     Indication: HYPERTENSION
     Dosage: 20 MG, 1X/DAY
     Route: 048
     Dates: start: 2014

REACTIONS (5)
  - Crystal arthropathy [Unknown]
  - Tenosynovitis [Unknown]
  - Condition aggravated [Recovering/Resolving]
  - Arthropathy [Not Recovered/Not Resolved]
  - Rheumatoid factor increased [Unknown]

NARRATIVE: CASE EVENT DATE: 2017
